FAERS Safety Report 10021079 (Version 1)
Quarter: 2014Q1

REPORT INFORMATION
  Report Type: Spontaneous
  Country: US (occurrence: None)
  Receive Date: 20140318
  Receipt Date: 20140318
  Transmission Date: 20141002
  Serious: Yes (Hospitalization, Disabling, Other)
  Sender: FDA-Public Use
  Company Number: None

PATIENT
  Age: 54 Year
  Sex: Female
  Weight: 76.66 kg

DRUGS (15)
  1. OXYCODONE/ACETAMINOPHEN [Suspect]
     Indication: PAIN
     Dosage: 1 PILL EVERY 6 HRS
     Route: 048
     Dates: start: 20140207, end: 20140209
  2. OXYCODONE/ACETAMINOPHEN [Suspect]
     Indication: RHEUMATOID ARTHRITIS
     Dosage: 1 PILL EVERY 6 HRS
     Route: 048
     Dates: start: 20140207, end: 20140209
  3. OXYCODONE/ACETAMINOPHEN [Suspect]
     Indication: FIBROMYALGIA
     Dosage: 1 PILL EVERY 6 HRS
     Route: 048
     Dates: start: 20140207, end: 20140209
  4. AMLODIPINE [Concomitant]
  5. LISINOPRIL [Concomitant]
  6. HYDROCHLOROTHIAZIDE [Concomitant]
  7. FLEXERIL [Concomitant]
  8. XANAX [Concomitant]
  9. SAVELLA [Concomitant]
  10. FLONASE [Concomitant]
  11. CLARINEX [Concomitant]
  12. B-12 [Concomitant]
  13. VIT D [Concomitant]
  14. CENTRUM SILVER [Concomitant]
  15. VIT E [Concomitant]

REACTIONS (7)
  - Vomiting [None]
  - Abdominal pain upper [None]
  - Abdominal pain upper [None]
  - Toxicity to various agents [None]
  - Nausea [None]
  - Product substitution issue [None]
  - Product quality issue [None]
